FAERS Safety Report 17031007 (Version 2)
Quarter: 2019Q4

REPORT INFORMATION
  Report Type: Spontaneous
  Country: US (occurrence: US)
  Receive Date: 20191114
  Receipt Date: 20191227
  Transmission Date: 20200122
  Serious: Yes (Hospitalization)
  Sender: FDA-Public Use
  Company Number: US-BAUSCH-BL-2019-060966

PATIENT
  Sex: Male

DRUGS (2)
  1. XIFAXAN [Suspect]
     Active Substance: RIFAXIMIN
     Indication: HEPATIC ENCEPHALOPATHY
     Dosage: STARTED 5 YEARS AGO
     Route: 048
     Dates: start: 2014
  2. XIFAXAN [Suspect]
     Active Substance: RIFAXIMIN
     Dosage: RESTARTED
     Route: 048

REACTIONS (2)
  - Ammonia increased [Recovered/Resolved]
  - Inability to afford medication [Unknown]
